FAERS Safety Report 5988760-X (Version None)
Quarter: 2008Q4

REPORT INFORMATION
  Report Type: 
  Country: None (occurrence: None)
  Receive Date: 20081210
  Receipt Date: 20081203
  Transmission Date: 20090506
  Serious: Yes (Hospitalization)
  Sender: FDA-Public Use
  Company Number: PHHY2008TR27834

PATIENT
  Sex: Female

DRUGS (3)
  1. MYFORTIC [Suspect]
     Indication: IMMUNOSUPPRESSION
     Dosage: UNK
     Route: 048
     Dates: start: 20080401, end: 20081107
  2. CYCLOSPORINE [Suspect]
     Route: 048
  3. DELTACORTRIL [Concomitant]
     Dosage: 10MG/DAY
     Route: 048

REACTIONS (4)
  - CONFUSIONAL STATE [None]
  - CONVULSION [None]
  - ENCEPHALITIS CYTOMEGALOVIRUS [None]
  - ENCEPHALOPATHY [None]
